FAERS Safety Report 8566006 (Version 5)
Quarter: 2013Q4

REPORT INFORMATION
  Report Type: Spontaneous
  Country: US (occurrence: US)
  Receive Date: 20120516
  Receipt Date: 20131031
  Transmission Date: 20140711
  Serious: Yes (Hospitalization, Other)
  Sender: FDA-Public Use
  Company Number: US-009507513-1205USA02181

PATIENT
  Age: 8 Year
  Sex: Male

DRUGS (3)
  1. SINGULAIR [Suspect]
     Indication: RHINITIS ALLERGIC
     Dosage: 5 MG, UNK
     Route: 048
     Dates: start: 20120412, end: 20120414
  2. SINGULAIR [Suspect]
     Dosage: 5 MG, UNK
     Route: 048
  3. FLUTICASONE [Concomitant]

REACTIONS (2)
  - Suicidal ideation [Recovering/Resolving]
  - Abnormal behaviour [Recovering/Resolving]
